FAERS Safety Report 7954508-2 (Version None)
Quarter: 2011Q4

REPORT INFORMATION
  Report Type: 
  Country: None (occurrence: None)
  Receive Date: 20111202
  Receipt Date: 20111128
  Transmission Date: 20120403
  Serious: Yes (Other)
  Sender: FDA-Public Use
  Company Number: US-CELGENEUS-163-21880-11031773

PATIENT
  Sex: Female
  Weight: 78.088 kg

DRUGS (21)
  1. ALPRAZOLAM [Concomitant]
     Dosage: .25 MICROGRAM
     Route: 048
  2. MULTI-VITAMINS [Concomitant]
     Dosage: 1 TABLET
     Route: 048
  3. PSEUDO 60/TRIPROLIDINE [Concomitant]
     Dosage: 2.5 MILLIGRAM
     Route: 048
  4. SODIUM CHLORIDE [Concomitant]
     Dosage: 2 DOSAGE FORMS
     Route: 045
  5. VALACYCLOVIR HYDROCHLORIDE [Concomitant]
     Indication: INFECTION
     Dosage: 500 MILLIGRAM
     Route: 048
  6. DEXAMETHASONE [Concomitant]
     Indication: INFLAMMATION
     Dosage: 40 MILLIGRAM
     Route: 048
     Dates: start: 20100901
  7. CITALOPRAM HYDROBROMIDE [Concomitant]
     Dosage: 40 MILLIGRAM
     Route: 048
  8. ALBUTEROL [Concomitant]
     Indication: RESPIRATORY TRACT CONGESTION
     Route: 055
  9. REVLIMID [Suspect]
     Indication: MULTIPLE MYELOMA
     Dosage: 10 MILLIGRAM
     Route: 048
     Dates: start: 20100830
  10. REVLIMID [Suspect]
     Dosage: 15 MILLIGRAM
     Route: 048
     Dates: start: 20110726
  11. DOCUSATE SODIUM [Concomitant]
     Dosage: 100 MILLIGRAM
     Route: 048
  12. ASPIRIN [Concomitant]
     Dosage: 81 MILLIGRAM
     Route: 048
  13. CALCIUM/VITAMIN D3 [Concomitant]
     Dosage: 600MG/400 UNITS, 2 TABLES
     Route: 048
  14. FENTANYL [Concomitant]
     Indication: PAIN
     Dosage: 25 MICROGRAM
     Route: 062
  15. OMEPRAZOLE [Concomitant]
     Dosage: 20 MILLIGRAM
     Route: 048
  16. PERCOCET [Concomitant]
     Indication: PAIN
     Dosage: 325 MILLIGRAM
     Route: 048
  17. REVLIMID [Suspect]
     Dosage: 20 MILLIGRAM
     Route: 048
     Dates: start: 20110928
  18. POTASSIUM CHLORIDE [Concomitant]
     Route: 065
  19. NEURONTIN [Concomitant]
     Dosage: 300 MILLIGRAM
     Route: 048
  20. ALBUTEROL [Concomitant]
     Indication: COUGH
     Dosage: 18 MICROGRAM
     Route: 055
  21. POLYETHYLENE GLYCOL [Concomitant]
     Indication: CONSTIPATION
     Dosage: 17 GRAM
     Route: 048

REACTIONS (6)
  - UPPER RESPIRATORY TRACT INFECTION [None]
  - MONOCLONAL IMMUNOGLOBULIN PRESENT [None]
  - LUNG NEOPLASM [None]
  - LIGHT CHAIN ANALYSIS INCREASED [None]
  - PROTEIN URINE PRESENT [None]
  - MALAISE [None]
